FAERS Safety Report 25481287 (Version 1)
Quarter: 2025Q2

REPORT INFORMATION
  Report Type: Spontaneous
  Country: DE (occurrence: DE)
  Receive Date: 20250626
  Receipt Date: 20250626
  Transmission Date: 20250716
  Serious: Yes (Other)
  Sender: NOVITIUM PHARMA
  Company Number: DE-NOVITIUMPHARMA-2025DENVP01439

PATIENT
  Age: 57 Year
  Sex: Female

DRUGS (4)
  1. DEXAMETHASONE [Suspect]
     Active Substance: DEXAMETHASONE
     Indication: Plasma cell myeloma
  2. CARFILZOMIB [Concomitant]
     Active Substance: CARFILZOMIB
     Indication: Plasma cell myeloma
  3. LENALIDOMIDE [Concomitant]
     Active Substance: LENALIDOMIDE
     Indication: Plasma cell myeloma
  4. ENOXAPARIN SODIUM [Concomitant]
     Active Substance: ENOXAPARIN SODIUM
     Indication: Thrombosis prophylaxis

REACTIONS (2)
  - Thrombocytopenia [Unknown]
  - Deep vein thrombosis [Unknown]
